FAERS Safety Report 8257082-9 (Version None)
Quarter: 2012Q2

REPORT INFORMATION
  Report Type: 
  Country: None (occurrence: None)
  Receive Date: 20120403
  Receipt Date: 20120227
  Transmission Date: 20120825
  Serious: Yes (Hospitalization)
  Sender: FDA-Public Use
  Company Number: US-GLAXOSMITHKLINE-Z0014406A

PATIENT
  Age: 55 Year
  Sex: Female
  Weight: 64.7 kg

DRUGS (2)
  1. TOPOTECAN [Suspect]
     Indication: NEOPLASM
     Dosage: 2.5MG CYCLIC
     Route: 048
     Dates: start: 20120216
  2. VOTRIENT [Suspect]
     Indication: NEOPLASM
     Dosage: 800MG PER DAY
     Route: 048
     Dates: start: 20120221

REACTIONS (1)
  - HAEMOLYTIC URAEMIC SYNDROME [None]
